FAERS Safety Report 24943761 (Version 1)
Quarter: 2025Q1

REPORT INFORMATION
  Report Type: Spontaneous
  Country: FR (occurrence: FR)
  Receive Date: 20250207
  Receipt Date: 20250207
  Transmission Date: 20250409
  Serious: Yes (Death, Hospitalization, Other)
  Sender: NOVARTIS
  Company Number: FR-002147023-NVSC2025FR021218

PATIENT
  Age: 80 Year
  Sex: Female

DRUGS (1)
  1. CARBAMAZEPINE [Suspect]
     Active Substance: CARBAMAZEPINE
     Indication: Product used for unknown indication
     Route: 065

REACTIONS (1)
  - Drug reaction with eosinophilia and systemic symptoms [Fatal]
